FAERS Safety Report 11383548 (Version 1)
Quarter: 2015Q3

REPORT INFORMATION
  Report Type: Report from Study
  Country: US (occurrence: US)
  Receive Date: 20150814
  Receipt Date: 20150814
  Transmission Date: 20151125
  Serious: No
  Sender: FDA-Public Use
  Company Number: GXBR2015US000467

PATIENT
  Sex: Female

DRUGS (2)
  1. TACROLIMUS. [Suspect]
     Active Substance: TACROLIMUS
     Indication: PULMONARY FIBROSIS
     Dosage: 0.5 MG, BID
     Route: 048
     Dates: start: 20141226
  2. IMMUNOGLOBULINS NOS [Concomitant]
     Active Substance: HUMAN IMMUNOGLOBULIN G
     Indication: PRODUCT USED FOR UNKNOWN INDICATION
     Dosage: UNK DF, UNK

REACTIONS (3)
  - Oxygen consumption [Unknown]
  - Drug ineffective [Unknown]
  - Dyspnoea [Unknown]
